APPROVED DRUG PRODUCT: DIFLORASONE DIACETATE
Active Ingredient: DIFLORASONE DIACETATE
Strength: 0.05%
Dosage Form/Route: OINTMENT;TOPICAL
Application: A207440 | Product #001 | TE Code: AB
Applicant: RISING PHARMA HOLDINGS INC
Approved: Feb 27, 2017 | RLD: No | RS: No | Type: RX